FAERS Safety Report 13674261 (Version 1)
Quarter: 2017Q2

REPORT INFORMATION
  Report Type: Spontaneous
  Country: FR (occurrence: FR)
  Receive Date: 20170621
  Receipt Date: 20170621
  Transmission Date: 20170830
  Serious: Yes (Other)
  Sender: FDA-Public Use
  Company Number: FR-BAYER-2017-116417

PATIENT
  Age: 31 Year
  Sex: Female

DRUGS (1)
  1. MIRENA [Suspect]
     Active Substance: LEVONORGESTREL
     Indication: CONTRACEPTION
     Dosage: 20 MCG/24HR, CONT
     Route: 015
     Dates: start: 20100101, end: 20120531

REACTIONS (13)
  - Alopecia [Recovered/Resolved]
  - Loss of libido [Recovered/Resolved]
  - Anxiety [Recovered/Resolved]
  - Uterine pain [Recovered/Resolved]
  - Depression [Recovered/Resolved]
  - Back pain [Recovered/Resolved]
  - Menorrhagia [Recovered/Resolved]
  - Fatigue [Recovered/Resolved]
  - Vulvovaginal mycotic infection [Recovered/Resolved]
  - Irritability [Recovered/Resolved]
  - Nausea [Recovered/Resolved]
  - Migraine [Recovered/Resolved]
  - Vaginal haemorrhage [Recovered/Resolved]

NARRATIVE: CASE EVENT DATE: 2010
